FAERS Safety Report 14961042 (Version 1)
Quarter: 2018Q2

REPORT INFORMATION
  Report Type: Spontaneous
  Country: US (occurrence: US)
  Receive Date: 20180531
  Receipt Date: 20180531
  Transmission Date: 20180711
  Serious: Yes (Other)
  Sender: FDA-Public Use
  Company Number: US-BRISTOL-MYERS SQUIBB COMPANY-BMS-2018-048933

PATIENT
  Age: 66 Year
  Sex: Male
  Weight: 81.63 kg

DRUGS (1)
  1. OPDIVO [Suspect]
     Active Substance: NIVOLUMAB
     Indication: RENAL CELL CARCINOMA
     Dosage: UNK UNK, Q2WK
     Route: 042
     Dates: start: 20180405

REACTIONS (2)
  - Gait disturbance [Recovering/Resolving]
  - Mass [Unknown]

NARRATIVE: CASE EVENT DATE: 20180408
